FAERS Safety Report 6152298-X (Version None)
Quarter: 2009Q2

REPORT INFORMATION
  Report Type: 
  Country: None (occurrence: None)
  Receive Date: 20090410
  Receipt Date: 20090403
  Transmission Date: 20091009
  Serious: Yes (Disabling)
  Sender: FDA-Public Use
  Company Number: GB-MERCK-0904GBR00019

PATIENT
  Sex: Female

DRUGS (13)
  1. FOSAMAX [Suspect]
     Indication: OSTEOPOROSIS
     Route: 048
     Dates: start: 20060201, end: 20090301
  2. AMITRIPTYLINE HYDROCHLORIDE [Concomitant]
     Route: 065
  3. CALCIUM CARBONATE AND CHOLECALCIFEROL [Concomitant]
     Indication: OSTEOPOROSIS
     Route: 065
     Dates: start: 20060201
  4. ENALAPRIL MALEATE [Concomitant]
     Indication: HYPERTENSION
     Route: 048
  5. FUROSEMIDE [Concomitant]
     Route: 065
  6. LEVOTHYROXINE SODIUM [Concomitant]
     Indication: HYPOTHYROIDISM
     Route: 048
  7. MORPHINE SULFATE [Concomitant]
     Route: 065
  8. MORPHINE SULFATE [Concomitant]
     Indication: PAIN
     Route: 065
  9. ACETAMINOPHEN [Concomitant]
     Route: 065
  10. CALCIUM CARBONATE AND SODIUM ALGINATE AND SODIUM BICARBONATE [Concomitant]
     Indication: DYSPEPSIA
     Route: 048
  11. QUININE SULFATE [Concomitant]
     Route: 065
  12. ALBUTEROL [Concomitant]
     Indication: CHRONIC OBSTRUCTIVE PULMONARY DISEASE
  13. TRAMADOL HYDROCHLORIDE [Concomitant]
     Indication: PAIN
     Route: 048
     Dates: end: 20080801

REACTIONS (1)
  - FEMUR FRACTURE [None]
